FAERS Safety Report 8027309-7 (Version None)
Quarter: 2012Q1

REPORT INFORMATION
  Report Type: 
  Country: None (occurrence: None)
  Receive Date: 20120105
  Receipt Date: 20120105
  Transmission Date: 20120608
  Serious: Yes (Death)
  Sender: FDA-Public Use
  Company Number: None

PATIENT
  Age: 70 Year
  Sex: Male
  Weight: 86.1834 kg

DRUGS (17)
  1. PEPCID [Concomitant]
  2. METOPROLOL SUCCINATE [Concomitant]
  3. CYANOCOBALAMIN [Concomitant]
  4. PERIACTIN [Concomitant]
  5. CRESTOR [Concomitant]
  6. AMIODARONE HCL [Concomitant]
  7. FOSAMAX [Concomitant]
  8. TEMAZEPAM [Concomitant]
  9. LISINOPRIL [Concomitant]
  10. LORTAB [Concomitant]
  11. PRADAXA [Suspect]
     Indication: ATRIAL FIBRILLATION
     Dosage: 150 MG BID PO
     Route: 048
     Dates: start: 20110525
  12. ASPIRIN [Concomitant]
  13. CELEXA [Concomitant]
  14. VITAMIN D [Concomitant]
  15. MS CONTIN [Concomitant]
  16. DOCUSATE SODIUM [Concomitant]
  17. MORPHINE SULFATE [Concomitant]

REACTIONS (5)
  - COAGULOPATHY [None]
  - RESPIRATORY FAILURE [None]
  - HYPOTENSION [None]
  - SEPSIS [None]
  - CONVULSION [None]
